FAERS Safety Report 8289801-X (Version None)
Quarter: 2012Q2

REPORT INFORMATION
  Report Type: 
  Country: None (occurrence: None)
  Receive Date: 20120417
  Receipt Date: 20120412
  Transmission Date: 20120825
  Serious: No
  Sender: FDA-Public Use
  Company Number: US-PFIZER INC-2012091961

PATIENT
  Sex: Female
  Weight: 58.05 kg

DRUGS (14)
  1. LYRICA [Suspect]
     Dosage: 100 MG, 2X/DAY
     Route: 048
     Dates: start: 20110101
  2. NEURONTIN [Suspect]
     Indication: MULTIPLE SCLEROSIS
     Dosage: 300 MG, 3X/DAY
     Route: 048
  3. CITALOPRAM [Concomitant]
     Indication: DEPRESSION
  4. NEURONTIN [Suspect]
     Indication: NERVE INJURY
     Dosage: 400 MG, 3X/DAY
     Route: 048
  5. NEURONTIN [Suspect]
     Dosage: 600 MG, 2X/DAY
     Route: 048
     Dates: start: 20110101, end: 20110101
  6. NEURONTIN [Suspect]
     Dosage: 600 MG, 1X/DAY
     Route: 048
     Dates: start: 20110101
  7. IBUPROFEN [Concomitant]
     Indication: PAIN
     Dosage: 600 MG, UNK
  8. LEVOTHYROXINE SODIUM [Concomitant]
     Indication: THYROID DISORDER
     Dosage: UNK
  9. NEURONTIN [Suspect]
     Indication: PAIN
     Dosage: 600 MG, 3X/DAY
     Route: 048
     Dates: end: 20110101
  10. PREVACID [Concomitant]
     Indication: DYSPEPSIA
     Dosage: UNK
  11. CITALOPRAM [Concomitant]
     Indication: ANXIETY
     Dosage: UNK
  12. VICODIN [Concomitant]
     Indication: PAIN
     Dosage: UNK
  13. PREVACID [Concomitant]
     Indication: GASTROOESOPHAGEAL REFLUX DISEASE
  14. LYRICA [Suspect]
     Indication: PAIN
     Dosage: 100 MG, 1X/DAY
     Route: 048
     Dates: start: 20110101, end: 20110101

REACTIONS (2)
  - PAIN [None]
  - DRUG INEFFECTIVE [None]
